FAERS Safety Report 7678010-0 (Version None)
Quarter: 2011Q3

REPORT INFORMATION
  Report Type: 
  Country: None (occurrence: None)
  Receive Date: 20110811
  Receipt Date: 20110804
  Transmission Date: 20111222
  Serious: Yes (Hospitalization)
  Sender: FDA-Public Use
  Company Number: US-GLAXOSMITHKLINE-A0940396A

PATIENT
  Age: 53 Year
  Sex: Male

DRUGS (1)
  1. LAMICTAL [Suspect]
     Dosage: 100MG TWICE PER DAY
     Route: 065
     Dates: start: 20110329

REACTIONS (1)
  - ADVERSE EVENT [None]
